FAERS Safety Report 21826473 (Version 1)
Quarter: 2023Q1

REPORT INFORMATION
  Report Type: Spontaneous
  Country: US (occurrence: US)
  Receive Date: 20230106
  Receipt Date: 20230106
  Transmission Date: 20230417
  Serious: Yes (Death, Other)
  Sender: FDA-Public Use
  Company Number: US-BRISTOL-MYERS SQUIBB COMPANY-2023-001852

PATIENT
  Age: 86 Year
  Sex: Male
  Weight: 82.5 kg

DRUGS (1)
  1. REVLIMID [Suspect]
     Active Substance: LENALIDOMIDE
     Indication: Plasma cell myeloma
     Dosage: FREQUENCY- DAILY ON DAYS 1-28 EVERY 28 DAYS
     Route: 048
     Dates: start: 20110501

REACTIONS (1)
  - Death [Fatal]
